FAERS Safety Report 6022788-9 (Version None)
Quarter: 2008Q4

REPORT INFORMATION
  Report Type: 
  Country: None (occurrence: None)
  Receive Date: 20081224
  Receipt Date: 20081224
  Transmission Date: 20090506
  Serious: Yes (Other)
  Sender: FDA-Public Use
  Company Number: None

PATIENT
  Age: 56 Year
  Sex: Male
  Weight: 74.8435 kg

DRUGS (1)
  1. CALIUM ACETATE 667 MG ROXANE [Suspect]
     Indication: BLOOD PHOSPHORUS ABNORMAL
     Dosage: 667 MG EACH MEAL PO
     Route: 048
     Dates: start: 20081001, end: 20081130

REACTIONS (2)
  - BLOOD PHOSPHORUS INCREASED [None]
  - THERAPEUTIC RESPONSE UNEXPECTED WITH DRUG SUBSTITUTION [None]
